FAERS Safety Report 26174055 (Version 1)
Quarter: 2025Q4

REPORT INFORMATION
  Report Type: Spontaneous
  Country: US (occurrence: US)
  Receive Date: 20251218
  Receipt Date: 20251218
  Transmission Date: 20260118
  Serious: No
  Sender: SANOFI AVENTIS
  Company Number: US-SA-2025SA375965

PATIENT
  Sex: Female
  Weight: 59.09 kg

DRUGS (3)
  1. DUPIXENT [Suspect]
     Active Substance: DUPILUMAB
     Indication: Dermatitis atopic
     Dosage: 200 MG, QOW
     Route: 058
  2. CLOBETASOL [Concomitant]
     Active Substance: CLOBETASOL
  3. ANZUPGO [Concomitant]
     Active Substance: DELGOCITINIB

REACTIONS (2)
  - Injection site pain [Unknown]
  - Condition aggravated [Unknown]
